FAERS Safety Report 9104190 (Version 1)
Quarter: 2013Q1

REPORT INFORMATION
  Report Type: Spontaneous
  Country: US (occurrence: US)
  Receive Date: 20130219
  Receipt Date: 20130219
  Transmission Date: 20140127
  Serious: Yes (Other)
  Sender: FDA-Public Use
  Company Number: PHEH2013US003938

PATIENT
  Sex: Female

DRUGS (42)
  1. GILENYA [Suspect]
     Indication: MULTIPLE SCLEROSIS
     Dosage: 0.5 MG, QD
     Route: 048
     Dates: start: 20120522
  2. DESMOPRESSIN [Concomitant]
     Dosage: 0.2 MG, UNK
     Route: 048
     Dates: start: 20110819
  3. GABAPENTIN [Concomitant]
     Dosage: 300 MG, UNK
     Dates: start: 20110809
  4. LYRICA [Concomitant]
     Dosage: 300 MG, UNK
     Dates: start: 20110803
  5. LYRICA [Concomitant]
     Dosage: 300 MG, UNK
     Dates: end: 20120515
  6. LYRICA [Concomitant]
     Dosage: 300 MG, UNK
     Dates: start: 20130208
  7. LEVOTHROID [Concomitant]
     Dosage: 0.175 MG, UNK
     Dates: start: 20110720
  8. CYMBALTA [Concomitant]
     Dosage: 60 MG, UNK
     Dates: start: 20110605
  9. CYMBALTA [Concomitant]
     Dosage: 30 MG, UNK
     Dates: end: 20120515
  10. CYMBALTA [Concomitant]
     Dosage: 60 MG, UNK
     Dates: start: 20130212
  11. ABILIFY [Concomitant]
     Dosage: 10 MG, UNK
     Dates: start: 20110602
  12. ABILIFY [Concomitant]
     Dosage: 10 MG, UNK
     Dates: end: 20120515
  13. ABILIFY [Concomitant]
     Dosage: 10 MG, UNK
     Dates: end: 20120818
  14. ABILIFY [Concomitant]
     Dosage: 10 MG, UNK
     Dates: start: 20130212
  15. SYNTHROID [Concomitant]
     Dosage: 0.15 MG, UNK
     Dates: start: 20101130
  16. SYNTHROID [Concomitant]
     Dosage: 0.025 MG, UNK
     Dates: start: 20120907
  17. SYNTHROID [Concomitant]
     Dosage: 0.2 MG, UNK
     Dates: start: 20120907
  18. DULERA [Concomitant]
     Dosage: 100.5 UG, UNK
     Dates: end: 20130121
  19. DULERA [Concomitant]
     Dosage: 100.5 UG, UNK
     Dates: start: 20130118
  20. ZOLPIDEM [Concomitant]
     Dosage: 10 MG, UNK
     Route: 048
  21. ZOLPIDEM [Concomitant]
     Dosage: 10 MG, UNK
     Route: 048
     Dates: end: 20120615
  22. ZOLPIDEM [Concomitant]
     Dosage: 10 MG, UNK
     Route: 048
     Dates: start: 20130212
  23. TOVIAZ [Concomitant]
     Dosage: 8 MG, UNK
     Route: 048
  24. NEXIUM HP [Concomitant]
     Dosage: 40 MG, UNK
     Route: 048
  25. NEXIUM HP [Concomitant]
     Dosage: 40 MG, UNK
     Route: 048
     Dates: start: 20130212
  26. NUVARING [Concomitant]
  27. TIZANIDINE [Concomitant]
     Dosage: 2 MG, UNK
     Dates: end: 20121126
  28. TIZANIDINE [Concomitant]
     Dosage: 2 MG, UNK
     Dates: end: 20130211
  29. TIZANIDINE [Concomitant]
     Dosage: 2 MG, UNK
     Dates: start: 20130206
  30. LEVOTHYROXINE [Concomitant]
     Dosage: 0.025 MG, UNK
     Dates: end: 20120813
  31. DEXILANT [Concomitant]
     Dosage: 60 MG, UNK
  32. TOPIRAMATE [Concomitant]
     Dosage: 100 MG, UNK
     Route: 048
  33. ONDANSETRON [Concomitant]
     Dosage: 8 MG, UNK
     Route: 048
  34. ONDANSETRON [Concomitant]
     Dosage: 4 MG, UNK
     Route: 048
     Dates: start: 20120112
  35. METHADONE [Concomitant]
     Dosage: 5 MG, UNK
     Route: 048
     Dates: start: 20130212
  36. TRILIPIX [Concomitant]
     Dosage: 135 MG, UNK
     Dates: start: 20130212
  37. HYDROMORPHONE [Concomitant]
     Dosage: 4 MG, UNK
     Route: 048
     Dates: start: 20130110
  38. PROGESTERONE [Concomitant]
     Dosage: 200 MG, UNK
     Dates: start: 20121207
  39. CEPHALEXIN [Concomitant]
     Dosage: 500 MG, UNK
     Dates: start: 20121126
  40. FENTANYL [Concomitant]
     Dosage: 100 UG, UNK
     Dates: start: 20121126
  41. SENNA [Concomitant]
     Dosage: UNK UKN, UNK
     Route: 048
     Dates: start: 20121024
  42. PREDNISONE [Concomitant]
     Dosage: 10 MG, UNK
     Route: 048
     Dates: start: 20110819

REACTIONS (4)
  - Central nervous system lesion [Not Recovered/Not Resolved]
  - Abdominal discomfort [Not Recovered/Not Resolved]
  - Abdominal pain [Not Recovered/Not Resolved]
  - Vomiting [Not Recovered/Not Resolved]
